FAERS Safety Report 15467632 (Version 2)
Quarter: 2018Q4

REPORT INFORMATION
  Report Type: Spontaneous
  Country: US (occurrence: US)
  Receive Date: 20181005
  Receipt Date: 20181011
  Transmission Date: 20190204
  Serious: Yes (Hospitalization)
  Sender: FDA-Public Use
  Company Number: US-BAUSCH-BL-2018-027020

PATIENT
  Age: 34 Year
  Sex: Female

DRUGS (3)
  1. MIGRANAL [Suspect]
     Active Substance: DIHYDROERGOTAMINE MESYLATE
     Indication: MIGRAINE
     Dosage: 1 TO 2 SPRAYS IN EACH NOSTRIL AS NEEDED
     Route: 045
     Dates: end: 201712
  2. DIHYDROERGOTAMINE MESYLATE. [Suspect]
     Active Substance: DIHYDROERGOTAMINE MESYLATE
     Indication: MIGRAINE
     Dosage: 1 ML INTRAMUSCULARLY AS NEEDED?2 TO 8 TIMES IN A MONTH
     Route: 030
     Dates: start: 1998
  3. DIHYDROERGOTAMINE MESYLATE. [Suspect]
     Active Substance: DIHYDROERGOTAMINE MESYLATE
     Indication: MIGRAINE
     Dosage: 1 TO 2 SPRAYS IN EACH NOSTRIL AS NEEDED
     Route: 045
     Dates: end: 201712

REACTIONS (2)
  - Expired product administered [Recovered/Resolved]
  - Drug ineffective [Unknown]

NARRATIVE: CASE EVENT DATE: 2018
